FAERS Safety Report 9271226 (Version 2)
Quarter: 2013Q2

REPORT INFORMATION
  Report Type: Report from Study
  Country: CA (occurrence: CA)
  Receive Date: 20130506
  Receipt Date: 20130606
  Transmission Date: 20140414
  Serious: Yes (Death, Hospitalization)
  Sender: FDA-Public Use
  Company Number: PHHY2013CA044131

PATIENT
  Age: 72 Year
  Sex: Female

DRUGS (9)
  1. ACLASTA [Suspect]
     Indication: OSTEOPOROSIS
     Dosage: UNK
     Route: 042
     Dates: start: 20120731
  2. VITAMIN D [Concomitant]
     Dosage: 800 IU, QD
     Route: 048
  3. VITAMIN D [Concomitant]
     Dosage: 4000 IU, QD
     Route: 048
  4. TUMS [Concomitant]
     Dosage: AMOUNTING TO GREATER THAN 1000 AND OFTEN 1500 MG OF ELEMENTAL CALCIUM
  5. SYNTHROID [Concomitant]
     Dosage: 75 UG, QD
  6. VITAMIN C [Concomitant]
     Dosage: 500 MG, ONCE DAILY
  7. NITRAZEPAM [Concomitant]
     Dosage: UNK
  8. TRAZODONE [Concomitant]
     Dosage: UNK
  9. QUININE [Concomitant]
     Dosage: AT NIGHT

REACTIONS (3)
  - Death [Fatal]
  - Hip fracture [Unknown]
  - Movement disorder [Unknown]
